FAERS Safety Report 23193803 (Version 1)
Quarter: 2023Q4

REPORT INFORMATION
  Report Type: Report from Study
  Country: US (occurrence: US)
  Receive Date: 20231116
  Receipt Date: 20231116
  Transmission Date: 20240110
  Serious: Yes (Hospitalization)
  Sender: FDA-Public Use
  Company Number: US-ABBVIE-5493626

PATIENT
  Sex: Male

DRUGS (2)
  1. SKYRIZI [Suspect]
     Active Substance: RISANKIZUMAB-RZAA
     Indication: Psoriasis
     Route: 058
     Dates: start: 20200608
  2. SULFUR [Suspect]
     Active Substance: SULFUR
     Indication: Product used for unknown indication
     Route: 065

REACTIONS (6)
  - Bronchitis [Unknown]
  - COVID-19 [Unknown]
  - Arthritis [Unknown]
  - Pneumonia [Unknown]
  - Rash pruritic [Unknown]
  - Allergy to chemicals [Unknown]
